FAERS Safety Report 12507285 (Version 1)
Quarter: 2016Q2

REPORT INFORMATION
  Report Type: Report from Study
  Country: US (occurrence: US)
  Receive Date: 20160629
  Receipt Date: 20160629
  Transmission Date: 20160815
  Serious: No
  Sender: FDA-Public Use
  Company Number: PHEH2016US015882

PATIENT
  Sex: Male

DRUGS (1)
  1. ENTRESTO [Suspect]
     Active Substance: SACUBITRIL\VALSARTAN
     Indication: CARDIAC FAILURE
     Dosage: UNK UNK, BID
     Route: 065

REACTIONS (6)
  - Nasopharyngitis [Unknown]
  - Swollen tongue [Unknown]
  - Oral disorder [Unknown]
  - Decreased appetite [Unknown]
  - Tongue discolouration [Unknown]
  - Tongue disorder [Unknown]
